FAERS Safety Report 13559035 (Version 1)
Quarter: 2017Q2

REPORT INFORMATION
  Report Type: Spontaneous
  Country: AU (occurrence: AU)
  Receive Date: 20170518
  Receipt Date: 20170518
  Transmission Date: 20170830
  Serious: Yes (Hospitalization)
  Sender: FDA-Public Use
  Company Number: AU-PFIZER INC-2017213349

PATIENT
  Age: 56 Year
  Sex: Male
  Weight: 80 kg

DRUGS (1)
  1. GENTAMICIN. [Suspect]
     Active Substance: GENTAMICIN
     Dosage: 160 MG, SINGLE DOSE

REACTIONS (3)
  - Hyponatraemia [Unknown]
  - Somnolence [Unknown]
  - Vestibular disorder [Unknown]
